FAERS Safety Report 7267884-3 (Version None)
Quarter: 2011Q1

REPORT INFORMATION
  Report Type: 
  Country: None (occurrence: None)
  Receive Date: 20110201
  Receipt Date: 20110125
  Transmission Date: 20110831
  Serious: Yes (Hospitalization)
  Sender: FDA-Public Use
  Company Number: US-US-EMD SERONO, INC.-7036957

PATIENT
  Sex: Female

DRUGS (3)
  1. REBIF [Suspect]
     Indication: MULTIPLE SCLEROSIS
     Route: 058
     Dates: start: 20090626, end: 20101001
  2. REBIF [Suspect]
     Route: 058
     Dates: start: 20110110
  3. CELEXA [Concomitant]

REACTIONS (3)
  - LOSS OF CONSCIOUSNESS [None]
  - THERMAL BURN [None]
  - PAIN [None]
